FAERS Safety Report 7873231-6 (Version None)
Quarter: 2011Q4

REPORT INFORMATION
  Report Type: 
  Country: None (occurrence: None)
  Receive Date: 20111027
  Receipt Date: 20111026
  Transmission Date: 20120403
  Serious: Yes (Hospitalization)
  Sender: FDA-Public Use
  Company Number: TCI2011A03703

PATIENT
  Age: 71 Year
  Sex: Male

DRUGS (8)
  1. BENJIX (VOGLIBOSE) [Concomitant]
  2. GLYBURIDE [Concomitant]
  3. OLMESARTAN MEDOXOMIL [Concomitant]
  4. AMLODIN OD (AMLODIPINE BESILATE) [Concomitant]
  5. GAMOFA (FAMOTIDINE) [Concomitant]
  6. DIBETON S (BUFORMIN HYDROCHLOIDE) [Concomitant]
  7. ACE INHIBITOR NOS [Concomitant]
  8. ACTOS [Suspect]
     Indication: TYPE 2 DIABETES MELLITUS
     Dosage: 30 MG(30MG, 1 D)
     Route: 048
     Dates: start: 20080422, end: 20091026

REACTIONS (11)
  - DIABETIC NEPHROPATHY [None]
  - NEPHROGENIC ANAEMIA [None]
  - LOSS OF CONSCIOUSNESS [None]
  - DIABETIC NEUROPATHY [None]
  - HYPERTENSIVE NEPHROPATHY [None]
  - MYOCARDIAL ISCHAEMIA [None]
  - RENAL FAILURE [None]
  - DIABETIC RETINOPATHY [None]
  - CONDITION AGGRAVATED [None]
  - PNEUMONIA PRIMARY ATYPICAL [None]
  - DIABETES MELLITUS INADEQUATE CONTROL [None]
